FAERS Safety Report 18261621 (Version 1)
Quarter: 2020Q3

REPORT INFORMATION
  Report Type: Spontaneous
  Country: GR (occurrence: GR)
  Receive Date: 20200914
  Receipt Date: 20200914
  Transmission Date: 20201103
  Serious: Yes (Other)
  Sender: FDA-Public Use
  Company Number: GR-ROCHE-2673114

PATIENT
  Age: 45 Year
  Sex: Female

DRUGS (9)
  1. HERCEPTIN [Suspect]
     Active Substance: TRASTUZUMAB
     Indication: TRIPLE POSITIVE BREAST CANCER
     Dosage: ADMINISTERED FOR 12 WEEKS
     Route: 065
  2. HERCEPTIN [Suspect]
     Active Substance: TRASTUZUMAB
     Route: 065
  3. ADRIAMYCIN [Concomitant]
     Active Substance: DOXORUBICIN HYDROCHLORIDE
     Indication: TRIPLE POSITIVE BREAST CANCER
     Dosage: 100 MG/CYCLE, 4 CYCLE
  4. PACLITAXEL. [Concomitant]
     Active Substance: PACLITAXEL
     Indication: TRIPLE POSITIVE BREAST CANCER
     Dosage: ADMINISTERED FOR 12 WEEKS
  5. TRIPTORELIN [Concomitant]
     Active Substance: TRIPTORELIN
     Indication: TRIPLE POSITIVE BREAST CANCER
  6. SPIRONOLACTONE. [Concomitant]
     Active Substance: SPIRONOLACTONE
  7. LETROZOLE. [Concomitant]
     Active Substance: LETROZOLE
     Indication: TRIPLE POSITIVE BREAST CANCER
  8. CYCLOPHOSPHAMIDE. [Concomitant]
     Active Substance: CYCLOPHOSPHAMIDE
     Indication: TRIPLE POSITIVE BREAST CANCER
     Dosage: 1000 MG/CYCLE, 4 CYCLE
  9. HERCEPTIN [Suspect]
     Active Substance: TRASTUZUMAB
     Dosage: DISCONTINUED
     Route: 065

REACTIONS (3)
  - Ejection fraction decreased [Recovering/Resolving]
  - Cardiotoxicity [Recovering/Resolving]
  - Electrocardiogram ST-T segment depression [Recovering/Resolving]
